FAERS Safety Report 21645185 (Version 1)
Quarter: 2022Q4

REPORT INFORMATION
  Report Type: Spontaneous
  Country: NL (occurrence: NL)
  Receive Date: 20221126
  Receipt Date: 20221126
  Transmission Date: 20230113
  Serious: Yes (Other)
  Sender: FDA-Public Use
  Company Number: None

PATIENT
  Sex: Female
  Weight: 68 kg

DRUGS (2)
  1. PREDNISOLONE [Interacting]
     Active Substance: PREDNISOLONE
     Indication: Fibromyalgia
     Dosage: 5 MILLIGRAM DAILY; 1 X PER DAY, STRENGTH :  5MG / BRAND NAME NOT SPECIFIED, THERAPY END DATE : ASKU
     Route: 065
     Dates: start: 20220928
  2. PAROXETINE [Concomitant]
     Active Substance: PAROXETINE
     Indication: Product used for unknown indication
     Dosage: 20 MILLIGRAM DAILY; STRENGTH : 20MG / BRAND NAME NOT SPECIFIED, 20 MG P.D, THERAPY START DATE : ASKU

REACTIONS (5)
  - Suicidal ideation [Not Recovered/Not Resolved]
  - Depressed mood [Not Recovered/Not Resolved]
  - Restlessness [Not Recovered/Not Resolved]
  - Drug interaction [Not Recovered/Not Resolved]
  - Anger [Not Recovered/Not Resolved]
